FAERS Safety Report 5368942-0 (Version None)
Quarter: 2007Q2

REPORT INFORMATION
  Report Type: 
  Country: None (occurrence: None)
  Receive Date: 20070620
  Receipt Date: 20070605
  Transmission Date: 20071010
  Serious: Yes (Hospitalization)
  Sender: FDA-Public Use
  Company Number: 100#03#2007-02107

PATIENT
  Age: 81 Year
  Sex: Male

DRUGS (4)
  1. SIMVASTATIN [Suspect]
     Indication: PROPHYLAXIS
     Dosage: 40MG, ORAL
     Route: 048
     Dates: end: 20061119
  2. FLUCONAZOLE [Suspect]
     Indication: OESOPHAGITIS
     Dosage: 50MG (1/1 DAYS), ORAL
     Route: 048
     Dates: start: 20061026, end: 20061120
  3. OCTREOTIDE (OCTREOTIDE) (OCTREOTIDE) [Concomitant]
  4. PARACETAMOL (PARACETAMOL) (PARACETAMOL) [Concomitant]

REACTIONS (3)
  - DRUG INTERACTION [None]
  - RENAL IMPAIRMENT [None]
  - RHABDOMYOLYSIS [None]
